FAERS Safety Report 10693370 (Version 2)
Quarter: 2015Q1

REPORT INFORMATION
  Report Type: Spontaneous
  Country: IT (occurrence: IT)
  Receive Date: 20150106
  Receipt Date: 20150116
  Transmission Date: 20150720
  Serious: Yes (Hospitalization)
  Sender: FDA-Public Use
  Company Number: IT-SA-2015SA000133

PATIENT
  Age: 26 Year
  Sex: Female

DRUGS (2)
  1. BISACODYL. [Suspect]
     Active Substance: BISACODYL
     Dosage: FREQUENCY- TOTAL
     Route: 048
     Dates: start: 20140412, end: 20140412
  2. LASIX [Suspect]
     Active Substance: FUROSEMIDE
     Route: 048
     Dates: start: 20140412, end: 20140412

REACTIONS (3)
  - Drug abuse [Unknown]
  - Presyncope [Recovered/Resolved]
  - Hypokalaemia [Recovered/Resolved]

NARRATIVE: CASE EVENT DATE: 20140412
